FAERS Safety Report 5766011-9 (Version None)
Quarter: 2008Q2

REPORT INFORMATION
  Report Type: 
  Country: None (occurrence: None)
  Receive Date: 20080611
  Receipt Date: 20080530
  Transmission Date: 20081010
  Serious: Yes (Other)
  Sender: FDA-Public Use
  Company Number: US-PFIZER INC-2008043206

PATIENT
  Sex: Female
  Weight: 92.1 kg

DRUGS (8)
  1. CHANTIX [Suspect]
     Indication: SMOKING CESSATION THERAPY
     Dates: start: 20080301, end: 20080501
  2. CALCIUM [Concomitant]
  3. VITAMIN CAP [Concomitant]
  4. IRON [Concomitant]
  5. URSODIOL [Concomitant]
  6. FAMOTIDINE [Concomitant]
  7. METFORMIN HCL [Concomitant]
  8. CHOLESTEROL [Concomitant]

REACTIONS (3)
  - ABDOMINAL PAIN UPPER [None]
  - GASTRIC BYPASS [None]
  - HEADACHE [None]
